FAERS Safety Report 13325576 (Version 1)
Quarter: 2017Q1

REPORT INFORMATION
  Report Type: Spontaneous
  Country: FR (occurrence: FR)
  Receive Date: 20170310
  Receipt Date: 20170310
  Transmission Date: 20170428
  Serious: Yes (Life-Threatening, Hospitalization)
  Sender: FDA-Public Use
  Company Number: FR-JNJFOC-20170311058

PATIENT
  Age: 65 Year
  Sex: Male

DRUGS (2)
  1. XARELTO [Suspect]
     Active Substance: RIVAROXABAN
     Indication: ATRIAL FIBRILLATION
     Dosage: 20MG, MT
     Route: 048
     Dates: start: 20161226, end: 20170116
  2. BISOPROLOL HEMIFUMARATE [Suspect]
     Active Substance: BISOPROLOL FUMARATE
     Indication: ATRIAL FIBRILLATION
     Dosage: CUMMULATIVE DOSE: 82.5MG
     Route: 048
     Dates: start: 20161226, end: 20170116

REACTIONS (4)
  - Pulmonary alveolar haemorrhage [Recovering/Resolving]
  - Pyrexia [Recovered/Resolved]
  - Renal failure [Recovering/Resolving]
  - Thrombocytopenia [Recovering/Resolving]

NARRATIVE: CASE EVENT DATE: 20170108
